FAERS Safety Report 9370809 (Version 1)
Quarter: 2013Q2

REPORT INFORMATION
  Report Type: Spontaneous
  Country: FR (occurrence: FR)
  Receive Date: 20130626
  Receipt Date: 20130626
  Transmission Date: 20140414
  Serious: Yes (Death)
  Sender: FDA-Public Use
  Company Number: FR-JNJFOC-20130615740

PATIENT
  Age: 93 Year
  Sex: Female

DRUGS (9)
  1. XARELTO [Suspect]
     Indication: THROMBOSIS PROPHYLAXIS
     Route: 048
     Dates: start: 201301
  2. XARELTO [Suspect]
     Indication: PULMONARY EMBOLISM
     Route: 048
     Dates: start: 201301
  3. PREVISCAN (FLUINDIONE) [Suspect]
     Indication: ATRIAL FIBRILLATION
     Route: 048
     Dates: start: 20130502
  4. EBIXA [Concomitant]
     Route: 065
  5. EXELON [Concomitant]
     Route: 065
  6. TRIATEC [Concomitant]
     Route: 065
  7. CORDARONE [Concomitant]
     Indication: ATRIAL FIBRILLATION
     Route: 065
  8. CERIS [Concomitant]
     Route: 065
  9. INEXIUM [Concomitant]
     Route: 065

REACTIONS (1)
  - Cerebrovascular accident [Fatal]
